FAERS Safety Report 14832863 (Version 1)
Quarter: 2018Q2

REPORT INFORMATION
  Report Type: Spontaneous
  Country: US (occurrence: US)
  Receive Date: 20180412
  Receipt Date: 20180412
  Transmission Date: 20180711
  Serious: Yes (Hospitalization)
  Sender: FDA-Public Use
  Company Number: None

PATIENT
  Age: 49 Year
  Sex: Female
  Weight: 63.5 kg

DRUGS (16)
  1. PROVENTIL HFA [Concomitant]
     Active Substance: ALBUTEROL SULFATE
     Dates: start: 20180221
  2. SENNA LAX 8.6 MG [Concomitant]
     Dates: start: 20180221
  3. KETOROLAC TROMETHAMINE INJECTION 30 MG/ML [Concomitant]
     Dates: start: 20180222
  4. SODIUM CHLORIDE 0.9% 1000 ML [Concomitant]
     Dates: start: 20180222
  5. DEXAMETHASONE 4 MG TABLETS [Concomitant]
     Dates: start: 20180222
  6. HEPARIN 100 U/ML FLUSH 5 ML [Concomitant]
     Dates: start: 20180222
  7. FISH OIL CAPSULE [Concomitant]
     Dates: start: 20180221
  8. DOCUSATE SODIUM 100 MG [Concomitant]
     Dates: start: 20180221
  9. NORMAL SALINE 0.9% FLUSH (10 ML) [Concomitant]
     Dates: start: 20180222
  10. CO-Q 10 OMEGA-3 FISH OIL [Concomitant]
     Dates: start: 20180221
  11. MONTELUKAST SODIUM 10 MG [Concomitant]
     Active Substance: MONTELUKAST SODIUM
     Dates: start: 20180221
  12. ONDANSETRON ODT 4 MG [Concomitant]
     Dates: start: 20180222
  13. ACETAMINOPHEN EXTRA STRENGTH 500 MG PRN [Concomitant]
     Dates: start: 20180221
  14. MIDODRINE HCL 5 MG [Concomitant]
     Dates: start: 20180221, end: 20180406
  15. VITAMIN D (CHOLECALCIFEROL) 4000 UNITS [Concomitant]
     Dates: start: 20180221
  16. GAMMAGARD [Suspect]
     Active Substance: HUMAN IMMUNOGLOBULIN G
     Indication: AUTONOMIC NEUROPATHY
     Dosage: ?          OTHER FREQUENCY:EVERY 4 WEEKS;?
     Route: 041
     Dates: start: 20180222, end: 20180411

REACTIONS (5)
  - Back pain [None]
  - Dizziness [None]
  - Infusion related reaction [None]
  - Heart rate irregular [None]
  - Migraine [None]

NARRATIVE: CASE EVENT DATE: 20180402
